FAERS Safety Report 25466503 (Version 2)
Quarter: 2025Q4

REPORT INFORMATION
  Report Type: Spontaneous
  Country: US (occurrence: US)
  Receive Date: 20250623
  Receipt Date: 20251224
  Transmission Date: 20260117
  Serious: Yes (Other)
  Sender: COOPERSURGICAL
  Company Number: US-COOPERSURGICAL, INC.-2025CPS004976

PATIENT
  Sex: Female
  Weight: 99.773 kg

DRUGS (1)
  1. PARAGARD T 380A [Suspect]
     Active Substance: COPPER
     Indication: Contraception
     Dosage: UNK
     Route: 015
     Dates: start: 2006

REACTIONS (12)
  - Uterine leiomyoma [Recovered/Resolved]
  - Hysterectomy [Recovered/Resolved]
  - Reproductive complication associated with device [Not Recovered/Not Resolved]
  - Infertility female [Unknown]
  - Device breakage [Recovered/Resolved]
  - Foreign body in reproductive tract [Recovered/Resolved]
  - Complication of device removal [Recovered/Resolved]
  - Emotional disorder [Unknown]
  - Abnormal uterine bleeding [Unknown]
  - Discomfort [Unknown]
  - Off label use [Unknown]
  - Pain [Recovered/Resolved]

NARRATIVE: CASE EVENT DATE: 20060101
